FAERS Safety Report 14671446 (Version 1)
Quarter: 2018Q1

REPORT INFORMATION
  Report Type: Spontaneous
  Country: US (occurrence: US)
  Receive Date: 20180323
  Receipt Date: 20180323
  Transmission Date: 20180509
  Serious: Yes (Other)
  Sender: FDA-Public Use
  Company Number: US-ZYDUS-019320

PATIENT
  Age: 71 Year
  Sex: Male

DRUGS (2)
  1. AMIODARONE [Suspect]
     Active Substance: AMIODARONE
     Indication: PRODUCT USED FOR UNKNOWN INDICATION
     Route: 065
  2. APIXABAN [Concomitant]
     Active Substance: APIXABAN
     Indication: ANTICOAGULANT THERAPY
     Route: 065

REACTIONS (11)
  - Liver disorder [Unknown]
  - Abdominal pain upper [Unknown]
  - Decreased appetite [Unknown]
  - Hepatitis acute [Unknown]
  - Abnormal loss of weight [Unknown]
  - Alanine aminotransferase increased [Unknown]
  - Blood alkaline phosphatase increased [Unknown]
  - Portal vein thrombosis [Unknown]
  - Aspartate aminotransferase increased [Unknown]
  - Gastric disorder [Unknown]
  - Hepatic steatosis [Unknown]
